FAERS Safety Report 15826317 (Version 1)
Quarter: 2019Q1

REPORT INFORMATION
  Report Type: Spontaneous
  Country: NL (occurrence: NL)
  Receive Date: 20190115
  Receipt Date: 20190115
  Transmission Date: 20190417
  Serious: Yes (Other)
  Sender: FDA-Public Use
  Company Number: PHHY2019NL003288

PATIENT
  Age: 59 Year
  Sex: Female

DRUGS (2)
  1. CAPECITABINE. [Concomitant]
     Active Substance: CAPECITABINE
     Indication: ADENOCARCINOMA OF COLON
     Dosage: 77 MG/M2, CYCLIC (AN ABSOLUTE DOSE OF 150 MG, DAYS 1 AND 6 FOR THE FIRST TWO CYCLES)
     Route: 065
  2. OXALIPLATIN. [Suspect]
     Active Substance: OXALIPLATIN
     Indication: ADENOCARCINOMA OF COLON
     Dosage: 130 MG/M2, CYCLIC (ON DAY 1)
     Route: 065

REACTIONS (2)
  - Peripheral sensory neuropathy [Unknown]
  - Neurotoxicity [Unknown]
